FAERS Safety Report 8333720-7 (Version None)
Quarter: 2012Q2

REPORT INFORMATION
  Report Type: 
  Country: None (occurrence: None)
  Receive Date: 20120503
  Receipt Date: 20120427
  Transmission Date: 20120825
  Serious: Yes (Hospitalization)
  Sender: FDA-Public Use
  Company Number: DE-SANOFI-AVENTIS-2012SA030436

PATIENT
  Age: 89 Year
  Sex: Male

DRUGS (1)
  1. ISCOVER [Suspect]
     Route: 065

REACTIONS (1)
  - PULMONARY EMBOLISM [None]
